FAERS Safety Report 4969281-X (Version None)
Quarter: 2006Q2

REPORT INFORMATION
  Report Type: 
  Country: None (occurrence: None)
  Receive Date: 20060411
  Receipt Date: 20060330
  Transmission Date: 20061013
  Serious: Yes (Other)
  Sender: FDA-Public Use
  Company Number: US-ROCHE-442553

PATIENT
  Age: 40 Year
  Sex: Male
  Weight: 125.2 kg

DRUGS (4)
  1. PEG-INTERFERON ALFA 2A (RO 25-8310) [Suspect]
     Route: 065
     Dates: start: 20010821
  2. THYMOSIN ALPHA 1 [Suspect]
     Route: 065
     Dates: start: 20010822
  3. ATIVAN [Concomitant]
     Route: 048
     Dates: start: 20010828
  4. NYQUIL [Concomitant]
     Route: 048
     Dates: start: 20011031, end: 20011105

REACTIONS (4)
  - ANXIETY [None]
  - CONVULSION [None]
  - DEPRESSION [None]
  - DRUG INEFFECTIVE [None]
